FAERS Safety Report 20887084 (Version 1)
Quarter: 2022Q2

REPORT INFORMATION
  Report Type: Spontaneous
  Country: US (occurrence: None)
  Receive Date: 20220528
  Receipt Date: 20220528
  Transmission Date: 20220721
  Serious: Yes (Other)
  Sender: FDA-Public Use
  Company Number: US-ROCHE-3091636

PATIENT
  Sex: Male

DRUGS (2)
  1. ESBRIET [Suspect]
     Active Substance: PIRFENIDONE
     Indication: Idiopathic pulmonary fibrosis
     Dosage: LAST DOSE: 25/APR/2022
     Route: 048
     Dates: start: 20220226, end: 20220426
  2. KEFLEX [Concomitant]
     Active Substance: CEPHALEXIN
     Dates: start: 20220420

REACTIONS (3)
  - Rash [Unknown]
  - Oedema [Unknown]
  - Cellulitis [Unknown]
